FAERS Safety Report 4355741-1 (Version None)
Quarter: 2004Q2

REPORT INFORMATION
  Report Type: 
  Country: None (occurrence: None)
  Receive Date: 20040505
  Receipt Date: 20040421
  Transmission Date: 20050107
  Serious: Yes (Death, Other)
  Sender: FDA-Public Use
  Company Number: 083-20785-04040662

PATIENT
  Age: 52 Year
  Sex: Male

DRUGS (6)
  1. THALIDOMIDE [Suspect]
     Indication: MULTIPLE MYELOMA
     Dosage: 400 MG, DAILY, ORAL
     Route: 048
     Dates: start: 20000101
  2. DEXAMETHASONE [Concomitant]
  3. CISPLATIN [Concomitant]
  4. ADRIAMYCIN (ADRIAMYCIN) [Concomitant]
  5. CYCLOPHOSPHAMIDE [Concomitant]
  6. ETOPOSIDE [Concomitant]

REACTIONS (11)
  - BLOOD IMMUNOGLOBULIN G DECREASED [None]
  - BONE MARROW DEPRESSION [None]
  - BONE MARROW TOXICITY [None]
  - DRUG EFFECT DECREASED [None]
  - LIVER DISORDER [None]
  - MALIGNANT NEOPLASM PROGRESSION [None]
  - MULTIPLE MYELOMA [None]
  - PLASMACYTOMA [None]
  - SEPSIS [None]
  - SKIN DISORDER [None]
  - SPINAL DISORDER [None]
